FAERS Safety Report 12106042 (Version 2)
Quarter: 2016Q1

REPORT INFORMATION
  Report Type: Report from Study
  Country: US (occurrence: US)
  Receive Date: 20160223
  Receipt Date: 20160225
  Transmission Date: 20160526
  Serious: Yes (Other)
  Sender: FDA-Public Use
  Company Number: US-UCBSA-2016006266

PATIENT
  Sex: Female
  Weight: 81.6 kg

DRUGS (6)
  1. KEPPRA XR [Suspect]
     Active Substance: LEVETIRACETAM
     Dosage: 500 MG, 3X/DAY (TID)
     Route: 048
  2. TEGRETOL [Concomitant]
     Active Substance: CARBAMAZEPINE
     Indication: PRODUCT USED FOR UNKNOWN INDICATION
     Dosage: UNK
  3. LACOSAMIDE [Suspect]
     Active Substance: LACOSAMIDE
     Dosage: SHE HAD FORGOTTEN THAT SHE HAD ALREADY TAKEN VIMPAT AND TOOK IT FOR A SECOND TIMEUNK
     Route: 048
     Dates: start: 2012, end: 2012
  4. LACOSAMIDE [Suspect]
     Active Substance: LACOSAMIDE
     Dosage: SHE HAD FORGOTTEN THAT SHE HAD ALREADY TAKEN VIMPAT AND TOOK IT FOR A SECOND TIME
     Route: 048
     Dates: start: 2013, end: 2013
  5. LACOSAMIDE [Suspect]
     Active Substance: LACOSAMIDE
     Indication: SEIZURE
     Dosage: UNK
     Route: 048
     Dates: start: 2010, end: 2014
  6. KEPPRA XR [Suspect]
     Active Substance: LEVETIRACETAM
     Indication: SEIZURE
     Dosage: 500 MG/ 4 DAILY

REACTIONS (8)
  - Seizure [Recovered/Resolved]
  - Cognitive disorder [Not Recovered/Not Resolved]
  - Aura [Not Recovered/Not Resolved]
  - Aphasia [Not Recovered/Not Resolved]
  - Off label use [Unknown]
  - Incorrect dose administered [Unknown]
  - Visual field defect [Not Recovered/Not Resolved]
  - Diplopia [Recovered/Resolved]

NARRATIVE: CASE EVENT DATE: 2012
